FAERS Safety Report 21919486 (Version 2)
Quarter: 2023Q2

REPORT INFORMATION
  Report Type: Spontaneous
  Country: US (occurrence: US)
  Receive Date: 20230127
  Receipt Date: 20230428
  Transmission Date: 20230721
  Serious: No
  Sender: FDA-Public Use
  Company Number: US-BRISTOL-MYERS SQUIBB COMPANY-2023-012067

PATIENT
  Age: 59 Year
  Sex: Female

DRUGS (1)
  1. ORENCIA [Suspect]
     Active Substance: ABATACEPT
     Indication: Arthralgia
     Route: 058
     Dates: start: 202003

REACTIONS (12)
  - Food allergy [Unknown]
  - Arthritis [Unknown]
  - Drug ineffective [Unknown]
  - Lethargy [Unknown]
  - Asthenia [Unknown]
  - Oropharyngeal pain [Unknown]
  - Headache [Unknown]
  - Feeding disorder [Unknown]
  - Dizziness [Unknown]
  - Treatment noncompliance [Unknown]
  - Fatigue [Unknown]
  - Malaise [Unknown]
